FAERS Safety Report 8176715-9 (Version None)
Quarter: 2012Q1

REPORT INFORMATION
  Report Type: 
  Country: None (occurrence: None)
  Receive Date: 20120228
  Receipt Date: 20120214
  Transmission Date: 20120608
  Serious: Yes (Other)
  Sender: FDA-Public Use
  Company Number: 2012-000619

PATIENT
  Age: 79 Year
  Sex: Female

DRUGS (1)
  1. ACTONEL [Suspect]
     Indication: OSTEOPOROSIS
     Dosage: 2.5 MG, ORAL
     Route: 048
     Dates: start: 20050101

REACTIONS (3)
  - FEMUR FRACTURE [None]
  - BONE PAIN [None]
  - INJURY [None]
